FAERS Safety Report 9030404 (Version 1)
Quarter: 2013Q1

REPORT INFORMATION
  Report Type: Spontaneous
  Country: FR (occurrence: FR)
  Receive Date: 20130122
  Receipt Date: 20130122
  Transmission Date: 20140127
  Serious: Yes (Hospitalization)
  Sender: FDA-Public Use
  Company Number: FR-ASTRAZENECA-2013SE03762

PATIENT
  Age: 70 Year
  Sex: Male

DRUGS (13)
  1. HYTACAND [Suspect]
     Dosage: 16 MG + 12.5 MG
     Route: 048
     Dates: end: 20121221
  2. BIPROFENID [Suspect]
     Route: 048
     Dates: start: 20121130, end: 20121221
  3. ALPRESS [Concomitant]
  4. NEBIVOLOL [Concomitant]
  5. METFORMIN [Concomitant]
  6. PERMIXON [Concomitant]
  7. ZYLORIC [Concomitant]
  8. EUPANTOL [Concomitant]
  9. KARDEGIC [Concomitant]
  10. TOPALGIC [Concomitant]
     Dates: start: 201211
  11. DAFALGAN [Concomitant]
     Dates: start: 201211
  12. MYOLASTAN [Concomitant]
     Dates: start: 201211
  13. ARIXTRA [Concomitant]
     Dates: start: 201211

REACTIONS (4)
  - Haematuria [Recovered/Resolved]
  - Dehydration [Recovered/Resolved]
  - Renal failure acute [Recovered/Resolved]
  - Haemoglobin decreased [None]
